FAERS Safety Report 6643585-7 (Version None)
Quarter: 2010Q1

REPORT INFORMATION
  Report Type: 
  Country: None (occurrence: None)
  Receive Date: 20100320
  Receipt Date: 20100308
  Transmission Date: 20100710
  Serious: No
  Sender: FDA-Public Use
  Company Number: JP-JNJFOC-20100303138

PATIENT
  Age: 50 Year
  Sex: Female

DRUGS (5)
  1. FENTANYL [Suspect]
     Indication: FIBROMYALGIA
     Route: 062
  2. FENTANYL [Suspect]
     Indication: PAIN
     Route: 062
  3. SENNOSIDE [Concomitant]
     Route: 048
  4. NAUZELIN [Concomitant]
     Route: 065
  5. CODEINE SULFATE [Concomitant]
     Route: 048

REACTIONS (2)
  - DRUG ADMINISTERED AT INAPPROPRIATE SITE [None]
  - RASH [None]
